FAERS Safety Report 6927693-9 (Version None)
Quarter: 2010Q3

REPORT INFORMATION
  Report Type: 
  Country: None (occurrence: None)
  Receive Date: 20100812
  Receipt Date: 20100809
  Transmission Date: 20110219
  Serious: Yes (Other)
  Sender: FDA-Public Use
  Company Number: CR10-0277

PATIENT
  Sex: Male

DRUGS (2)
  1. PRIMATENE MIST [Suspect]
  2. NOT PROVIDED; UNKNOWN [Suspect]

REACTIONS (3)
  - DEVICE BREAKAGE [None]
  - EYE INJURY [None]
  - INJURY ASSOCIATED WITH DEVICE [None]
